FAERS Safety Report 12284569 (Version 1)
Quarter: 2016Q2

REPORT INFORMATION
  Report Type: Spontaneous
  Country: JP (occurrence: JP)
  Receive Date: 20160420
  Receipt Date: 20160420
  Transmission Date: 20160815
  Serious: Yes (Other)
  Sender: FDA-Public Use
  Company Number: JP-ROCHE-1744781

PATIENT
  Age: 6 Decade
  Sex: Female

DRUGS (2)
  1. AVASTIN [Suspect]
     Active Substance: BEVACIZUMAB
     Indication: MALIGNANT GLIOMA
     Route: 041
  2. NIDRAN [Suspect]
     Active Substance: NIMUSTINE
     Indication: MALIGNANT GLIOMA
     Route: 041

REACTIONS (4)
  - White blood cell count decreased [Unknown]
  - Sensory disturbance [Unknown]
  - Neutrophil count decreased [Unknown]
  - Lymphocyte count decreased [Unknown]
